FAERS Safety Report 7207585-0 (Version None)
Quarter: 2010Q4

REPORT INFORMATION
  Report Type: 
  Country: None (occurrence: None)
  Receive Date: 20101221
  Receipt Date: 20101214
  Transmission Date: 20110411
  Serious: Yes (Other)
  Sender: FDA-Public Use
  Company Number: 2010SP064658

PATIENT
  Age: 39 Year
  Sex: Female
  Weight: 63.5036 kg

DRUGS (6)
  1. IMPLANON [Suspect]
     Indication: CONTRACEPTION
     Dates: start: 20080601
  2. LITHIUM CARBONATE [Concomitant]
  3. LAMICTAL [Concomitant]
  4. CLONAZEPAM [Concomitant]
  5. CALCIUM [Concomitant]
  6. MULTIVITAMIN [Concomitant]

REACTIONS (4)
  - ANXIETY [None]
  - BIPOLAR DISORDER [None]
  - DEPRESSION [None]
  - MOOD SWINGS [None]
